FAERS Safety Report 18543948 (Version 3)
Quarter: 2022Q3

REPORT INFORMATION
  Report Type: Other
  Country: US (occurrence: None)
  Receive Date: 20201124
  Receipt Date: 20220718
  Transmission Date: 20221027
  Serious: No
  Sender: FDA-Public Use
  Company Number: US-ROCHE-2716515

PATIENT
  Age: 34 Year
  Sex: Female
  Weight: 86.260 kg

DRUGS (3)
  1. OCREVUS [Suspect]
     Active Substance: OCRELIZUMAB
     Indication: Relapsing-remitting multiple sclerosis
     Dosage: DATE OF TREATMENT: 11/APR/2018, 27/APR/2018, 03/OCT/2018, 19/SEP/2019, 22/MAR/2021
     Route: 042
     Dates: start: 201803
  2. IRON [Concomitant]
     Active Substance: IRON
     Indication: Blood iron decreased
     Route: 048
     Dates: start: 202009
  3. SOLU-MEDROL [Concomitant]
     Active Substance: METHYLPREDNISOLONE SODIUM SUCCINATE

REACTIONS (6)
  - Maternal exposure before pregnancy [Unknown]
  - Gestational diabetes [Not Recovered/Not Resolved]
  - COVID-19 [Recovered/Resolved]
  - Vomiting [Recovered/Resolved]
  - Decreased appetite [Recovered/Resolved]
  - Sensory loss [Recovered/Resolved]

NARRATIVE: CASE EVENT DATE: 20180401
